FAERS Safety Report 11026495 (Version 1)
Quarter: 2015Q2

REPORT INFORMATION
  Report Type: Spontaneous
  Country: US (occurrence: US)
  Receive Date: 20150414
  Receipt Date: 20150414
  Transmission Date: 20150821
  Serious: No
  Sender: FDA-Public Use
  Company Number: US-CUBIST PHARMACEUTICALS, INC.-2015CBST000190

PATIENT

DRUGS (2)
  1. ZERBAXA [Suspect]
     Active Substance: CEFTOLOZANE SULFATE\TAZOBACTAM SODIUM
     Indication: OFF LABEL USE
  2. ZERBAXA [Suspect]
     Active Substance: CEFTOLOZANE SULFATE\TAZOBACTAM SODIUM
     Indication: PSEUDOMONAL SEPSIS
     Dosage: UNK UNK, UNK
     Route: 065
     Dates: start: 20150211, end: 20150212

REACTIONS (2)
  - Antimicrobial susceptibility test resistant [Unknown]
  - Off label use [Unknown]

NARRATIVE: CASE EVENT DATE: 20150212
